FAERS Safety Report 8487580-4 (Version None)
Quarter: 2012Q2

REPORT INFORMATION
  Report Type: 
  Country: None (occurrence: None)
  Receive Date: 20120612
  Receipt Date: 20120528
  Transmission Date: 20120825
  Serious: Yes (Life-Threatening)
  Sender: FDA-Public Use
  Company Number: PL-IGSA-IG1080

PATIENT
  Age: 66 Year
  Sex: Female

DRUGS (1)
  1. FLEBOGAMMA [Suspect]
     Indication: IMMUNODEFICIENCY
     Dosage: 10 GM
     Route: 042
     Dates: start: 20120405, end: 20120405

REACTIONS (5)
  - INFUSION RELATED REACTION [None]
  - CHILLS [None]
  - EXTRASYSTOLES [None]
  - PALPITATIONS [None]
  - ASTHENIA [None]
